FAERS Safety Report 19824237 (Version 1)
Quarter: 2021Q3

REPORT INFORMATION
  Report Type: Report from Study
  Country: US (occurrence: US)
  Receive Date: 20210913
  Receipt Date: 20210913
  Transmission Date: 20211014
  Serious: Yes (Hospitalization, Other)
  Sender: FDA-Public Use
  Company Number: US-BRISTOL-MYERS SQUIBB COMPANY-BMS-2021-090076

PATIENT
  Age: 45 Year
  Sex: Female
  Weight: 48.3 kg

DRUGS (4)
  1. NIVOLUMAB [Suspect]
     Active Substance: NIVOLUMAB
     Indication: METASTASES TO LUNG
  2. CABOZANTINIB [Suspect]
     Active Substance: CABOZANTINIB
     Indication: COLON CANCER METASTATIC
     Dosage: 40 MG DAILY
     Route: 048
  3. CABOZANTINIB [Suspect]
     Active Substance: CABOZANTINIB
     Indication: METASTASES TO LUNG
  4. NIVOLUMAB [Suspect]
     Active Substance: NIVOLUMAB
     Indication: COLON CANCER METASTATIC
     Dosage: 480 MG Q28
     Route: 042

REACTIONS (1)
  - Anastomotic leak [Unknown]

NARRATIVE: CASE EVENT DATE: 20210905
